FAERS Safety Report 5528797-8 (Version None)
Quarter: 2007Q4

REPORT INFORMATION
  Report Type: 
  Country: None (occurrence: None)
  Receive Date: 20071119
  Receipt Date: 20070911
  Transmission Date: 20080405
  Serious: No
  Sender: FDA-Public Use
  Company Number: TPA2007A01709

PATIENT
  Age: 49 Year
  Sex: Female
  Weight: 47.1741 kg

DRUGS (4)
  1. ROZEREM [Suspect]
     Indication: INSOMNIA
     Dosage: 8 MG, QHS, PER ORAL
     Route: 048
     Dates: start: 20070701, end: 20070701
  2. XANAX [Concomitant]
  3. BALACET (PROPOXYPHENE, PARACETAMOL) [Concomitant]
  4. TOPAMAX [Concomitant]

REACTIONS (1)
  - DRUG INEFFECTIVE [None]
